FAERS Safety Report 7376612-2 (Version None)
Quarter: 2011Q1

REPORT INFORMATION
  Report Type: 
  Country: None (occurrence: None)
  Receive Date: 20110317
  Receipt Date: 20110216
  Transmission Date: 20110831
  Serious: Yes (Hospitalization, Other)
  Sender: FDA-Public Use
  Company Number: SIS-7

PATIENT
  Age: 59 Year
  Sex: Male

DRUGS (3)
  1. BACLOFEN [Suspect]
     Indication: MUSCLE SPASTICITY
     Dosage: 100 MCG/150 MCG  IT
     Route: 037
     Dates: start: 20101124
  2. BACLOFEN [Suspect]
     Indication: MUSCLE SPASTICITY
     Dosage: 100 MCG/150 MCG  IT
     Route: 037
     Dates: start: 20101021, end: 20101123
  3. UNACID [Concomitant]

REACTIONS (9)
  - HAEMATOCRIT DECREASED [None]
  - MEAN CELL HAEMOGLOBIN CONCENTRATION DECREASED [None]
  - DEVICE LEAKAGE [None]
  - C-REACTIVE PROTEIN INCREASED [None]
  - RED BLOOD CELL COUNT DECREASED [None]
  - IMPLANT SITE EFFUSION [None]
  - HAEMOGLOBIN DECREASED [None]
  - MEAN CELL VOLUME INCREASED [None]
  - BLOOD POTASSIUM DECREASED [None]
